FAERS Safety Report 6290913-0 (Version None)
Quarter: 2009Q3

REPORT INFORMATION
  Report Type: 
  Country: None (occurrence: None)
  Receive Date: 20090730
  Receipt Date: 20090720
  Transmission Date: 20100115
  Serious: Yes (Other)
  Sender: FDA-Public Use
  Company Number: PHHY2009DE30269

PATIENT
  Age: 72 Year
  Sex: Female

DRUGS (13)
  1. DIOVAN [Suspect]
     Indication: HYPERTENSION
     Dosage: 160 MG/DAY
     Route: 048
  2. VENLAFAXINE HCL [Suspect]
     Dosage: 75 MG /DAY
     Route: 048
     Dates: start: 20080308, end: 20080310
  3. VENLAFAXINE HCL [Suspect]
     Dosage: 150 MG/DAY
     Route: 048
     Dates: start: 20080311, end: 20080417
  4. NEXIUM [Suspect]
     Indication: GASTROINTESTINAL DISORDER
     Dosage: 20 MG/DAY
     Route: 048
     Dates: end: 20080417
  5. RAMIPRIL [Suspect]
     Dosage: 10 MG/DAY
     Route: 048
  6. REMERGIL [Suspect]
     Dosage: 15 MG/DAY
     Route: 048
     Dates: start: 20080210, end: 20080419
  7. SORTIS [Concomitant]
     Indication: HYPERLIPIDAEMIA
     Dosage: 20 MG/DAY
     Route: 048
     Dates: end: 20080417
  8. NEBILET [Concomitant]
     Dosage: 5 MG/DAY
     Dates: end: 20080417
  9. ASPIRIN [Concomitant]
     Indication: ANALGESIA
     Dosage: 100 MG/DAY
     Route: 048
     Dates: end: 20080417
  10. ZOPICLON [Concomitant]
     Dosage: 7.5 MG/DAY
     Route: 048
     Dates: start: 20080306, end: 20080311
  11. ZOPICLON [Concomitant]
     Dosage: 3.75 MG/DAY
     Route: 048
     Dates: start: 20080312
  12. LORAZEPAM [Concomitant]
     Dosage: 2 MG /DAY
     Route: 048
     Dates: start: 20080306, end: 20080401
  13. LORAZEPAM [Concomitant]
     Dosage: 1.5 MG/DAY
     Route: 048
     Dates: start: 20080402, end: 20080410

REACTIONS (2)
  - CYSTITIS [None]
  - HYPONATRAEMIA [None]
